FAERS Safety Report 6381536-3 (Version None)
Quarter: 2009Q3

REPORT INFORMATION
  Report Type: 
  Country: None (occurrence: None)
  Receive Date: 20090925
  Receipt Date: 20090914
  Transmission Date: 20100115
  Serious: Yes (Hospitalization)
  Sender: FDA-Public Use
  Company Number: ADR27982009

PATIENT
  Age: 65 Year
  Sex: Female

DRUGS (8)
  1. RAMIPRIL [Suspect]
     Indication: HYPERTENSION
     Dosage: 10 MG 1/1 DAY
     Route: 048
  2. DIGITOXIN INJ [Concomitant]
  3. EUTHROID-1 [Concomitant]
  4. FALITHROM ^HEXAL^ [Concomitant]
  5. HYDROCHLOROTHIAZIDE [Concomitant]
  6. METHOHEXITAL [Concomitant]
  7. TORSEMIDE [Concomitant]
  8. CIPRO [Concomitant]

REACTIONS (1)
  - ATRIAL FIBRILLATION [None]
